FAERS Safety Report 7960081-5 (Version None)
Quarter: 2011Q4

REPORT INFORMATION
  Report Type: 
  Country: None (occurrence: None)
  Receive Date: 20111206
  Receipt Date: 20111128
  Transmission Date: 20120403
  Serious: Yes (Other)
  Sender: FDA-Public Use
  Company Number: CHPA2011CA016961

PATIENT
  Sex: Female

DRUGS (1)
  1. BUCKLEY'S COUGH, COLD + FLU NIGHTIME RELIEF EXTRA STRENGTH [Suspect]
     Indication: NASOPHARYNGITIS
     Dosage: UNK DF, UNK
     Route: 048

REACTIONS (1)
  - BLOOD PRESSURE INCREASED [None]
